FAERS Safety Report 16101204 (Version 1)
Quarter: 2019Q1

REPORT INFORMATION
  Report Type: Spontaneous
  Country: IN (occurrence: IN)
  Receive Date: 20190321
  Receipt Date: 20190321
  Transmission Date: 20190418
  Serious: Yes (Other)
  Sender: FDA-Public Use
  Company Number: IN-PFIZER INC-2018518737

PATIENT
  Age: 66 Year
  Sex: Female

DRUGS (3)
  1. PALBACE [Suspect]
     Active Substance: PALBOCICLIB
     Indication: BREAST CANCER METASTATIC
     Dosage: 125 MG, CYCLIC: ONCE A DAY FOR 21 DAYS AND THEN ONE WEEK OFF
     Route: 048
     Dates: start: 20171125
  2. ZOLDRIA [Concomitant]
     Dosage: 4 MG, MONTHLY
  3. FULVESTRANT. [Concomitant]
     Active Substance: FULVESTRANT
     Dosage: 500 MG, CYCLIC: ON DAY 1 AND DAY 14
     Route: 030
     Dates: start: 20171126

REACTIONS (6)
  - Arthralgia [Unknown]
  - Multiple sclerosis [Unknown]
  - Bone disorder [Unknown]
  - Weight increased [Unknown]
  - Back pain [Recovering/Resolving]
  - Malaise [Unknown]

NARRATIVE: CASE EVENT DATE: 20180228
